FAERS Safety Report 17200832 (Version 1)
Quarter: 2019Q4

REPORT INFORMATION
  Report Type: Spontaneous
  Country: CN (occurrence: CN)
  Receive Date: 20191226
  Receipt Date: 20191226
  Transmission Date: 20200122
  Serious: Yes (Hospitalization, Other)
  Sender: FDA-Public Use
  Company Number: CN-GLAXOSMITHKLINE-CN2019APC233631

PATIENT

DRUGS (3)
  1. PULMICORT RESPULAS [Concomitant]
     Indication: PRODUCTIVE COUGH
     Dosage: 1 MG, BID
     Route: 055
     Dates: start: 20191215, end: 20191215
  2. VENTOLIN [Suspect]
     Active Substance: ALBUTEROL SULFATE
     Indication: ASTHMA
     Dosage: 5 MG, BID
     Route: 055
     Dates: start: 20191215, end: 20191215
  3. SODIUM CHLORIDE. [Concomitant]
     Active Substance: SODIUM CHLORIDE
     Indication: VEHICLE SOLUTION USE
     Dosage: 3 ML, BID
     Route: 055
     Dates: start: 20191215, end: 20191215

REACTIONS (10)
  - Rales [Recovered/Resolved]
  - Palpitations [Recovered/Resolved]
  - Breath sounds abnormal [Recovered/Resolved]
  - Tremor [Recovered/Resolved]
  - Acute respiratory failure [Recovered/Resolved]
  - Cyanosis [Recovered/Resolved]
  - Chest discomfort [Recovered/Resolved]
  - Dyspnoea [Recovered/Resolved]
  - Agitation [Recovered/Resolved]
  - Oxygen saturation decreased [Recovered/Resolved]

NARRATIVE: CASE EVENT DATE: 20191215
